FAERS Safety Report 24621051 (Version 1)
Quarter: 2024Q4

REPORT INFORMATION
  Report Type: Spontaneous
  Country: US (occurrence: US)
  Receive Date: 20241114
  Receipt Date: 20241114
  Transmission Date: 20250115
  Serious: Yes (Other)
  Sender: RADIUS PHARM
  Company Number: US-RADIUS HEALTH, INC.-2024US007760

PATIENT
  Age: 62 Year
  Sex: Female

DRUGS (1)
  1. TYMLOS [Suspect]
     Active Substance: ABALOPARATIDE
     Indication: Senile osteoporosis
     Dosage: 80 MICROGRAM, QD
     Route: 058
     Dates: start: 20240929, end: 202410

REACTIONS (10)
  - Atrial fibrillation [Recovering/Resolving]
  - Heart rate irregular [Recovering/Resolving]
  - Abdominal discomfort [Unknown]
  - Nausea [Recovering/Resolving]
  - Headache [Unknown]
  - Pain [Unknown]
  - Injection site pain [Unknown]
  - Vomiting [Unknown]
  - Palpitations [Recovering/Resolving]
  - Malaise [Recovering/Resolving]

NARRATIVE: CASE EVENT DATE: 20240929
